FAERS Safety Report 18232845 (Version 1)
Quarter: 2020Q3

REPORT INFORMATION
  Report Type: Report from Study
  Country: SG (occurrence: SG)
  Receive Date: 20200904
  Receipt Date: 20200904
  Transmission Date: 20201103
  Serious: Yes (Hospitalization)
  Sender: FDA-Public Use
  Company Number: SG-PFIZER INC-2020339311

PATIENT
  Age: 59 Year
  Sex: Male

DRUGS (6)
  1. BBI608 [Suspect]
     Active Substance: NAPABUCASIN
     Dosage: 80 MG, 1X/DAY
     Route: 048
     Dates: end: 20190502
  2. LEUCOVORIN [FOLINIC ACID] [Suspect]
     Active Substance: LEUCOVORIN
     Indication: COLORECTAL CANCER METASTATIC
     Dosage: 792 MG, FORTNIGHTLY
     Route: 042
     Dates: start: 20190304, end: 20190527
  3. 5?FLUOROURACIL [FLUOROURACIL] [Suspect]
     Active Substance: FLUOROURACIL
     Indication: COLORECTAL CANCER METASTATIC
     Dosage: 292 MG, FORTNIGHTLY
     Route: 040
     Dates: start: 20190304, end: 20190318
  4. IRINOTECAN HCL [Suspect]
     Active Substance: IRINOTECAN HYDROCHLORIDE
     Indication: COLORECTAL CANCER METASTATIC
     Dosage: 238 MG, FORTNIGHTLY
     Route: 042
     Dates: start: 20190304, end: 20190527
  5. 5?FLUOROURACIL [FLUOROURACIL] [Suspect]
     Active Substance: FLUOROURACIL
     Dosage: 3564 MG, FORTNIGHTLY
     Route: 042
     Dates: start: 20190304, end: 20190527
  6. BBI608 [Suspect]
     Active Substance: NAPABUCASIN
     Indication: COLORECTAL CANCER METASTATIC
     Dosage: 240 MG, 2X/DAY
     Route: 048
     Dates: start: 20190302

REACTIONS (1)
  - Clostridium difficile infection [Recovered/Resolved]

NARRATIVE: CASE EVENT DATE: 20190530
